FAERS Safety Report 25009322 (Version 1)
Quarter: 2025Q1

REPORT INFORMATION
  Report Type: Spontaneous
  Country: US (occurrence: US)
  Receive Date: 20250225
  Receipt Date: 20250225
  Transmission Date: 20250409
  Serious: Yes (Other)
  Sender: JOHNSON AND JOHNSON
  Company Number: US-JNJFOC-20250253475

PATIENT
  Age: 73 Year
  Sex: Male
  Weight: 72.57 kg

DRUGS (45)
  1. OPSUMIT [Suspect]
     Active Substance: MACITENTAN
     Indication: Pulmonary arterial hypertension
     Route: 048
     Dates: start: 20240209
  2. OPSUMIT [Suspect]
     Active Substance: MACITENTAN
     Route: 048
     Dates: start: 20210311
  3. ORENITRAM [Suspect]
     Active Substance: TREPROSTINIL
     Indication: Pulmonary arterial hypertension
     Route: 048
     Dates: start: 20210730
  4. ORENITRAM [Suspect]
     Active Substance: TREPROSTINIL
     Route: 048
     Dates: start: 20220412
  5. PREDNISOLONE [Suspect]
     Active Substance: PREDNISOLONE
     Indication: Dyspnoea exertional
     Dates: start: 20240903
  6. PREDNISOLONE [Suspect]
     Active Substance: PREDNISOLONE
     Dates: start: 20240903
  7. PREDNISOLONE [Suspect]
     Active Substance: PREDNISOLONE
     Dates: start: 20240903
  8. PREDNISOLONE [Suspect]
     Active Substance: PREDNISOLONE
     Dates: start: 20240903
  9. DYMISTA [Concomitant]
     Active Substance: AZELASTINE HYDROCHLORIDE\FLUTICASONE PROPIONATE
     Dates: start: 20240620
  10. PLAQUENIL [Concomitant]
     Active Substance: HYDROXYCHLOROQUINE SULFATE
     Dates: start: 20240813
  11. COZAAR [Concomitant]
     Active Substance: LOSARTAN POTASSIUM
     Dates: start: 20240319
  12. PROCARDIA [Concomitant]
     Active Substance: NIFEDIPINE
     Dates: start: 20240319
  13. PROCARDIA [Concomitant]
     Active Substance: NIFEDIPINE
     Dates: start: 20240318, end: 202403
  14. OFEV [Concomitant]
     Active Substance: NINTEDANIB
     Dates: start: 20240619
  15. KLOR-CON [Concomitant]
     Active Substance: POTASSIUM CHLORIDE
     Dates: start: 20240408
  16. ALYQ [Concomitant]
     Active Substance: TADALAFIL
     Dates: start: 20240104
  17. ALYQ [Concomitant]
     Active Substance: TADALAFIL
     Dates: start: 20210409
  18. DEMADEX [Concomitant]
     Active Substance: TORSEMIDE
     Dates: start: 20240924
  19. DEMADEX [Concomitant]
     Active Substance: TORSEMIDE
     Dates: start: 20210416
  20. WIXELA INHUB [Concomitant]
     Active Substance: FLUTICASONE PROPIONATE\SALMETEROL XINAFOATE
     Dates: start: 20230831, end: 20240927
  21. PROVENTIL [Concomitant]
     Active Substance: ALBUTEROL
     Dates: start: 20240916
  22. TOZINAMERAN [Concomitant]
     Active Substance: TOZINAMERAN
     Dates: start: 20210315
  23. TOZINAMERAN [Concomitant]
     Active Substance: TOZINAMERAN
     Dates: start: 20211015
  24. TOZINAMERAN [Concomitant]
     Active Substance: TOZINAMERAN
     Dates: start: 20221011
  25. TOZINAMERAN [Concomitant]
     Active Substance: TOZINAMERAN
     Dates: start: 20231031
  26. TOZINAMERAN [Concomitant]
     Active Substance: TOZINAMERAN
     Dates: start: 20210212
  27. INFLUENZA VIRUS VACCINE [Concomitant]
     Active Substance: INFLUENZA VIRUS VACCINE
     Dates: start: 20231031
  28. INFLUENZA VIRUS VACCINE [Concomitant]
     Active Substance: INFLUENZA VIRUS VACCINE
     Dates: start: 20221011
  29. PNEUMOVAX 23 [Concomitant]
     Active Substance: PNEUMOCOCCAL VACCINE, POLYVALENT 23
     Dates: start: 20220217
  30. UNSPECIFIED INGREDIENT [Concomitant]
     Active Substance: UNSPECIFIED INGREDIENT
     Dates: start: 20231031
  31. SHINGRIX [Concomitant]
     Active Substance: RECOMBINANT VARICELLA ZOSTER VIRUS (VZV) GLYCOPROTEIN E
     Dates: start: 20240319
  32. ALBUTEROL [Concomitant]
     Active Substance: ALBUTEROL
     Dates: start: 20230612
  33. VITAMIN C [Concomitant]
     Active Substance: ASCORBIC ACID
  34. ZYRTEC [Concomitant]
     Active Substance: CETIRIZINE HYDROCHLORIDE
  35. VITAMIN D3 [Concomitant]
     Active Substance: CHOLECALCIFEROL
  36. NEXIUM [Concomitant]
     Active Substance: ESOMEPRAZOLE MAGNESIUM
  37. PROSCAR [Concomitant]
     Active Substance: FINASTERIDE
     Dates: start: 20240214
  38. FLOMAX [Concomitant]
     Active Substance: TAMSULOSIN HYDROCHLORIDE
     Dates: start: 20201222
  39. SOAANZ [Concomitant]
     Active Substance: TORSEMIDE
     Dates: start: 20240924
  40. SOAANZ [Concomitant]
     Active Substance: TORSEMIDE
     Dates: start: 20210416
  41. ZINCATE [Concomitant]
  42. VOLTAREN [Concomitant]
     Active Substance: DICLOFENAC SODIUM
     Dates: start: 20221215
  43. ATROVENT [Concomitant]
     Active Substance: IPRATROPIUM BROMIDE
     Dates: start: 20240417
  44. ADCIRCA [Concomitant]
     Active Substance: TADALAFIL
  45. SILDENAFIL [Concomitant]
     Active Substance: SILDENAFIL

REACTIONS (19)
  - Pericardial effusion [Unknown]
  - Syncope [Recovered/Resolved]
  - Type 1 diabetes mellitus [Not Recovered/Not Resolved]
  - Tricuspid valve incompetence [Unknown]
  - Wheezing [Recovering/Resolving]
  - Dizziness postural [Unknown]
  - Dyspnoea exertional [Unknown]
  - Cough [Unknown]
  - Oedema peripheral [Recovering/Resolving]
  - Feeling hot [Recovering/Resolving]
  - Anxiety [Unknown]
  - Oxygen saturation decreased [Recovered/Resolved]
  - Left atrial volume increased [Unknown]
  - Dyspnoea [Unknown]
  - Rales [Unknown]
  - Nasal congestion [Unknown]
  - Pallor [Unknown]
  - N-terminal prohormone brain natriuretic peptide increased [Unknown]
  - Left ventricular hypertrophy [Unknown]

NARRATIVE: CASE EVENT DATE: 20230615
